FAERS Safety Report 7340855-4 (Version None)
Quarter: 2011Q1

REPORT INFORMATION
  Report Type: 
  Country: None (occurrence: None)
  Receive Date: 20110228
  Receipt Date: 20110211
  Transmission Date: 20110831
  Serious: Yes (Other)
  Sender: FDA-Public Use
  Company Number: 027744

PATIENT
  Sex: Female

DRUGS (8)
  1. CIMZIA [Suspect]
     Indication: CROHN'S DISEASE
     Dosage: 400 MG 1X/MONTH, 200 MG (2 INJECTIONS) ONCE EVERY 2 WEEKS FOR 1 MONTH AND THEN MONTHLY SUBCUTANEOUS
     Route: 058
     Dates: start: 20090916
  2. LOMOTIL /00034001/ [Concomitant]
  3. AMBIEN [Concomitant]
  4. OMEPRAZOLE [Concomitant]
  5. CELEXA /PP582602 [Concomitant]
  6. AZATHIOPRINE [Concomitant]
  7. LEVOTHYROXINE SODIUM [Concomitant]
  8. TRAMADOL [Concomitant]

REACTIONS (4)
  - HYPOTHYROIDISM [None]
  - INTESTINAL ANASTOMOSIS [None]
  - DIARRHOEA INFECTIOUS [None]
  - ARTHRALGIA [None]
